FAERS Safety Report 4723472-1 (Version None)
Quarter: 2005Q3

REPORT INFORMATION
  Report Type: 
  Country: None (occurrence: None)
  Receive Date: 20050725
  Receipt Date: 20050705
  Transmission Date: 20060218
  Serious: Yes (Hospitalization)
  Sender: FDA-Public Use
  Company Number: FR-GLAXOSMITHKLINE-B0386989A

PATIENT
  Age: 41 Year
  Sex: Male

DRUGS (1)
  1. ZELITREX [Suspect]
     Dosage: 500MG PER DAY
     Route: 048

REACTIONS (1)
  - PATHOLOGICAL FRACTURE [None]
